FAERS Safety Report 5764015-3 (Version None)
Quarter: 2008Q2

REPORT INFORMATION
  Report Type: 
  Country: None (occurrence: None)
  Receive Date: 20080602
  Receipt Date: 20080213
  Transmission Date: 20081010
  Serious: No
  Sender: FDA-Public Use
  Company Number: PHEH2008US01919

PATIENT
  Sex: Female

DRUGS (3)
  1. TEKTURNA [Suspect]
     Indication: HYPERTENSION
     Dosage: QD, ORAL
     Route: 048
  2. AMLODIPINE BESYLATE [Suspect]
  3. NEURONTIN [Suspect]

REACTIONS (5)
  - ARTHRALGIA [None]
  - ERYTHEMA [None]
  - MUSCULOSKELETAL PAIN [None]
  - NECK PAIN [None]
  - PRURITUS [None]
